FAERS Safety Report 8334254-6 (Version None)
Quarter: 2012Q1

REPORT INFORMATION
  Report Type: 
  Country: None (occurrence: None)
  Receive Date: 20120329
  Receipt Date: 20100526
  Transmission Date: 20120608
  Serious: Yes (Other)
  Sender: FDA-Public Use
  Company Number: PHHY2010US26097

PATIENT
  Age: 76 Year
  Sex: Male
  Weight: 77.1 kg

DRUGS (6)
  1. NPH INSULIN [Concomitant]
  2. ZOCOR [Concomitant]
  3. METOPROLOL TARTRATE [Concomitant]
  4. EXELON [Suspect]
     Indication: AMNESIA
     Dosage: 4.6 MG, UNK, TRANSDERMAL
     Route: 062
     Dates: start: 20100420
  5. LASIX [Concomitant]
  6. PLAVIX [Concomitant]

REACTIONS (1)
  - CONFUSIONAL STATE [None]
